FAERS Safety Report 9894258 (Version 1)
Quarter: 2014Q1

REPORT INFORMATION
  Report Type: Spontaneous
  Country: US (occurrence: US)
  Receive Date: 20140213
  Receipt Date: 20140213
  Transmission Date: 20141002
  Serious: Yes (Other)
  Sender: FDA-Public Use
  Company Number: US-VIIV HEALTHCARE LIMITED-A1060035A

PATIENT
  Age: 41 Year
  Sex: Male

DRUGS (5)
  1. TIVICAY [Suspect]
     Indication: HIV INFECTION
     Dosage: 50MG PER DAY
     Route: 048
     Dates: start: 20140104
  2. EPZICOM [Concomitant]
  3. TEMAZEPAM [Concomitant]
  4. KLONOPIN [Concomitant]
  5. TESTOSTERONE [Concomitant]

REACTIONS (2)
  - Syphilis [Unknown]
  - Rash pruritic [Recovering/Resolving]
